FAERS Safety Report 8510985-X (Version None)
Quarter: 2012Q3

REPORT INFORMATION
  Report Type: 
  Country: None (occurrence: None)
  Receive Date: 20120716
  Receipt Date: 20120710
  Transmission Date: 20120928
  Serious: No
  Sender: FDA-Public Use
  Company Number: US-TEVA-347823USA

PATIENT
  Sex: Female
  Weight: 72.64 kg

DRUGS (6)
  1. OMEPRAZOLE [Concomitant]
     Dosage: 20 MILLIGRAM;
     Route: 048
  2. COPAXONE [Suspect]
     Indication: MULTIPLE SCLEROSIS
     Route: 058
     Dates: start: 20110101
  3. LYRICA [Concomitant]
     Dosage: 300 MILLIGRAM;
     Route: 048
  4. CARISOPRODOL [Concomitant]
     Dosage: 700 MILLIGRAM;
     Route: 048
  5. DOXYCYCLINE [Concomitant]
     Dosage: 200 MILLIGRAM;
     Route: 048
  6. CARBIDOPA [Concomitant]
     Dosage: 300 MILLIGRAM;
     Route: 048

REACTIONS (4)
  - INCORRECT STORAGE OF DRUG [None]
  - FALL [None]
  - INSOMNIA [None]
  - SYNOVIAL DISORDER [None]
